FAERS Safety Report 4289988-X (Version None)
Quarter: 2004Q1

REPORT INFORMATION
  Report Type: 
  Country: None (occurrence: None)
  Receive Date: 20040209
  Receipt Date: 20031208
  Transmission Date: 20041129
  Serious: Yes (Hospitalization, Other)
  Sender: FDA-Public Use
  Company Number: USA030741658

PATIENT
  Age: 83 Year
  Sex: Female
  Weight: 61 kg

DRUGS (10)
  1. FORTEO [Suspect]
     Indication: OSTEOPOROSIS
     Dosage: 20 UG/DAY
     Dates: start: 20030601
  2. EVISTA [Suspect]
  3. ZANTAC [Concomitant]
  4. SYNTHROID [Concomitant]
  5. LOPRESSOR [Concomitant]
  6. VOLTAREN [Concomitant]
  7. MEVACOR [Concomitant]
  8. MIACALCIN [Concomitant]
  9. TAMBOCOR [Concomitant]
  10. TRAZODONE HCL [Concomitant]

REACTIONS (5)
  - ARTERIAL STENOSIS [None]
  - DEPRESSION [None]
  - HYPERSOMNIA [None]
  - INSOMNIA [None]
  - MYOCARDIAL INFARCTION [None]
